FAERS Safety Report 4930743-2 (Version None)
Quarter: 2006Q1

REPORT INFORMATION
  Report Type: 
  Country: None (occurrence: None)
  Receive Date: 20060302
  Receipt Date: 20060221
  Transmission Date: 20060701
  Serious: Yes (Death)
  Sender: FDA-Public Use
  Company Number: JP-BRISTOL-MYERS SQUIBB COMPANY-13289285

PATIENT
  Age: 65 Year
  Sex: Male

DRUGS (2)
  1. TAXOL [Suspect]
     Indication: GASTRIC CANCER
     Route: 042
     Dates: start: 20060206, end: 20060206
  2. MAXIPIME [Suspect]
     Route: 042
     Dates: start: 20060201, end: 20060201

REACTIONS (1)
  - RENAL FAILURE ACUTE [None]
